FAERS Safety Report 8570170-2 (Version None)
Quarter: 2012Q3

REPORT INFORMATION
  Report Type: 
  Country: None (occurrence: None)
  Receive Date: 20120803
  Receipt Date: 20120726
  Transmission Date: 20120928
  Serious: Yes (Hospitalization)
  Sender: FDA-Public Use
  Company Number: JP-PFIZER INC-2012177715

PATIENT
  Age: 71 Year
  Sex: Female

DRUGS (13)
  1. DEPAS [Concomitant]
     Indication: INSOMNIA
     Dosage: 1 MG, 1X/DAY
     Route: 048
     Dates: start: 20120322, end: 20120716
  2. CELEBREX [Suspect]
     Indication: BACK PAIN
     Dosage: 100 MG, 2X/DAY
     Route: 048
     Dates: start: 20120626, end: 20120716
  3. LANSOPRAZOLE [Suspect]
     Indication: EPIGASTRIC DISCOMFORT
     Dosage: 15 MG, 1X/DAY
     Route: 048
     Dates: start: 20120510, end: 20120709
  4. PRAMIPEXOLE DIHYDROCHLORIDE [Suspect]
     Indication: PARKINSON'S DISEASE
     Dosage: UNK
     Route: 048
     Dates: start: 20120405, end: 20120601
  5. MADOPAR [Concomitant]
     Indication: PARKINSON'S DISEASE
     Dosage: 3 TAB. (1TAB., 3 IN 1 D)
     Route: 048
     Dates: start: 20120206
  6. RHYTHMY [Concomitant]
     Indication: INSOMNIA
     Dosage: 1 MG, 1X/DAY
     Route: 048
     Dates: start: 20120308, end: 20120716
  7. MAGMITT [Concomitant]
     Indication: CONSTIPATION
     Dosage: 330 MG, 2X/DAY
     Route: 048
     Dates: start: 20120510, end: 20120716
  8. LANSOPRAZOLE [Suspect]
     Dosage: 30 MG, 1X/DAY
     Route: 048
     Dates: start: 20120710, end: 20120716
  9. PRAMIPEXOLE DIHYDROCHLORIDE [Suspect]
     Dosage: 0.125 MG, 3X/DAY
     Route: 048
     Dates: start: 20120601, end: 20120716
  10. MUCOSTA [Concomitant]
     Indication: EPIGASTRIC DISCOMFORT
     Dosage: 100 MG, 2X/DAY
     Route: 048
     Dates: start: 20120626, end: 20120716
  11. LOXONIN [Concomitant]
     Indication: BACK PAIN
     Dosage: AS REQUIRED
     Route: 062
     Dates: start: 20120626, end: 20120716
  12. SYMMETREL [Concomitant]
     Indication: PARKINSON'S DISEASE
     Dosage: 50 MG, 3X/DAY
     Route: 048
     Dates: start: 20120206, end: 20120716
  13. GASMOTIN [Concomitant]
     Indication: EPIGASTRIC DISCOMFORT
     Dosage: 5 MG, 3X/DAY
     Route: 048
     Dates: start: 20120206, end: 20120716

REACTIONS (1)
  - RHABDOMYOLYSIS [None]
